FAERS Safety Report 6710717-1 (Version None)
Quarter: 2010Q1

REPORT INFORMATION
  Report Type: 
  Country: None (occurrence: None)
  Receive Date: 20100316
  Receipt Date: 20100316
  Transmission Date: 20100710
  Serious: Yes (Hospitalization)
  Sender: FDA-Public Use
  Company Number: None

PATIENT
  Age: 44 Year
  Sex: Male
  Weight: 80.5 kg

DRUGS (1)
  1. TREANDA [Suspect]
     Dosage: 224 MG D1, 2 Q21D IV
     Route: 042

REACTIONS (4)
  - DIALYSIS [None]
  - HAEMOGLOBIN DECREASED [None]
  - RENAL FAILURE ACUTE [None]
  - SUPERIOR VENA CAVAL OCCLUSION [None]
